FAERS Safety Report 6517363-3 (Version None)
Quarter: 2009Q4

REPORT INFORMATION
  Report Type: 
  Country: None (occurrence: None)
  Receive Date: 20091223
  Receipt Date: 20091222
  Transmission Date: 20100525
  Serious: Yes (Death, Hospitalization)
  Sender: FDA-Public Use
  Company Number: JP-ABBOTT-09P-087-0615679-00

PATIENT
  Sex: Female
  Weight: 45.8 kg

DRUGS (10)
  1. HUMIRA [Suspect]
     Indication: RHEUMATOID ARTHRITIS
     Route: 058
     Dates: start: 20090727, end: 20090824
  2. HUMIRA [Suspect]
     Route: 058
     Dates: start: 20091002, end: 20091130
  3. METHOTREXATE [Concomitant]
     Indication: RHEUMATOID ARTHRITIS
     Route: 048
  4. FOLIC ACID [Concomitant]
     Indication: PROPHYLAXIS
     Route: 048
  5. FOLIC ACID [Concomitant]
     Indication: ADVERSE EVENT
  6. ALENDRONATE SODIUM [Concomitant]
     Indication: OSTEOPOROSIS
     Route: 048
  7. CELECOXIB [Concomitant]
     Indication: RHEUMATOID ARTHRITIS
     Route: 048
  8. REBAMIPIDE [Concomitant]
     Indication: PROPHYLAXIS AGAINST GASTROINTESTINAL ULCER
     Route: 048
  9. ISOSORBIDE DINITRATE [Concomitant]
     Indication: ANGINA PECTORIS
     Route: 062
  10. ELCATONIN [Concomitant]
     Indication: OSTEOPOROSIS PROPHYLAXIS
     Route: 030

REACTIONS (4)
  - DIZZINESS [None]
  - NASOPHARYNGITIS [None]
  - NAUSEA [None]
  - SUBARACHNOID HAEMORRHAGE [None]
